FAERS Safety Report 5882342-6 (Version None)
Quarter: 2008Q3

REPORT INFORMATION
  Report Type: 
  Country: None (occurrence: None)
  Receive Date: 20080912
  Receipt Date: 20080731
  Transmission Date: 20090109
  Serious: No
  Sender: FDA-Public Use
  Company Number: US-ABBOTT-08P-163-0467690-00

PATIENT
  Sex: Male
  Weight: 102.6 kg

DRUGS (4)
  1. HUMIRA [Suspect]
     Indication: PSORIASIS
     Route: 058
     Dates: start: 20071201
  2. HUMIRA [Suspect]
     Indication: PSORIATIC ARTHROPATHY
  3. FOSFERNIL [Concomitant]
     Indication: BLOOD PRESSURE
     Route: 048
  4. UNKNOWN TOPICAL OINTMENT [Concomitant]
     Indication: PSORIASIS
     Route: 061

REACTIONS (2)
  - ARTHRALGIA [None]
  - DRUG INEFFECTIVE [None]
